FAERS Safety Report 16062102 (Version 4)
Quarter: 2019Q4

REPORT INFORMATION
  Report Type: Report from Study
  Country: US (occurrence: US)
  Receive Date: 20190312
  Receipt Date: 20191029
  Transmission Date: 20200122
  Serious: Yes (Other)
  Sender: FDA-Public Use
  Company Number: US-BIOGEN-2019BI00707342

PATIENT
  Age: 72 Year
  Sex: Female

DRUGS (2)
  1. TECFIDERA [Suspect]
     Active Substance: DIMETHYL FUMARATE
     Dosage: MAINTENANCE DOSE
     Route: 065
  2. TECFIDERA [Suspect]
     Active Substance: DIMETHYL FUMARATE
     Indication: MULTIPLE SCLEROSIS
     Dosage: STARTING DOSE
     Route: 065
     Dates: start: 20181009

REACTIONS (8)
  - Cough [Not Recovered/Not Resolved]
  - Cognitive disorder [Unknown]
  - Gait disturbance [Unknown]
  - Blindness transient [Recovered/Resolved]
  - Memory impairment [Unknown]
  - Nasopharyngitis [Not Recovered/Not Resolved]
  - Blindness unilateral [Recovered/Resolved]
  - Chills [Not Recovered/Not Resolved]

NARRATIVE: CASE EVENT DATE: 20191021
